FAERS Safety Report 7862439-1 (Version None)
Quarter: 2011Q4

REPORT INFORMATION
  Report Type: 
  Country: None (occurrence: None)
  Receive Date: 20111027
  Receipt Date: 20101102
  Transmission Date: 20120403
  Serious: No
  Sender: FDA-Public Use
  Company Number: US-AMGEN-USASP2010002906

PATIENT
  Sex: Female

DRUGS (1)
  1. ENBREL [Suspect]
     Indication: PRODUCT USED FOR UNKNOWN INDICATION
     Dates: start: 20100315

REACTIONS (9)
  - VOMITING [None]
  - MALAISE [None]
  - NAUSEA [None]
  - SINUS HEADACHE [None]
  - OROPHARYNGEAL PAIN [None]
  - FEELING COLD [None]
  - DIARRHOEA [None]
  - ORAL PUSTULE [None]
  - TREMOR [None]
